FAERS Safety Report 24457765 (Version 1)
Quarter: 2024Q4

REPORT INFORMATION
  Report Type: Report from Study
  Country: US (occurrence: US)
  Receive Date: 20241018
  Receipt Date: 20241018
  Transmission Date: 20250114
  Serious: No
  Sender: ROCHE
  Company Number: US-ROCHE-3445502

PATIENT
  Age: 31 Year
  Sex: Male

DRUGS (1)
  1. CATHFLO ACTIVASE [Suspect]
     Active Substance: ALTEPLASE
     Indication: Pneumonia chlamydial
     Dosage: 17/OCT/2023 (20 MG), 18/OCT/2023(10 MG).
     Route: 065
     Dates: start: 20231016

REACTIONS (2)
  - Off label use [Unknown]
  - No adverse event [Unknown]
